FAERS Safety Report 5043840-0 (Version None)
Quarter: 2006Q2

REPORT INFORMATION
  Report Type: 
  Country: None (occurrence: None)
  Receive Date: 20060601
  Receipt Date: 20060215
  Transmission Date: 20061013
  Serious: No
  Sender: FDA-Public Use
  Company Number: US200602003836

PATIENT
  Age: 81 Year
  Sex: Male

DRUGS (1)
  1. CYMBALTA [Suspect]
     Dosage: SEE IMAGE
     Route: 048

REACTIONS (3)
  - ABNORMAL DREAMS [None]
  - ANXIETY [None]
  - NIGHTMARE [None]
